FAERS Safety Report 6973717-2 (Version None)
Quarter: 2010Q3

REPORT INFORMATION
  Report Type: 
  Country: None (occurrence: None)
  Receive Date: 20100909
  Receipt Date: 20100901
  Transmission Date: 20110219
  Serious: Yes (Other)
  Sender: FDA-Public Use
  Company Number: JP-PFIZER INC-2010109858

PATIENT
  Age: 73 Year
  Sex: Male

DRUGS (4)
  1. RIFABUTIN [Suspect]
     Indication: ATYPICAL MYCOBACTERIAL INFECTION
  2. ETHAMBUTOL [Concomitant]
     Indication: ATYPICAL MYCOBACTERIAL INFECTION
  3. ISONIAZID [Concomitant]
     Indication: ATYPICAL MYCOBACTERIAL INFECTION
  4. AMIKACIN [Concomitant]
     Indication: ATYPICAL MYCOBACTERIAL INFECTION

REACTIONS (1)
  - INTERSTITIAL LUNG DISEASE [None]
